FAERS Safety Report 6396114-X (Version None)
Quarter: 2009Q4

REPORT INFORMATION
  Report Type: 
  Country: None (occurrence: None)
  Receive Date: 20091009
  Receipt Date: 20090928
  Transmission Date: 20100525
  Serious: Yes (Death)
  Sender: FDA-Public Use
  Company Number: PL-GENENTECH-290490

PATIENT
  Age: 9 Year
  Sex: Male

DRUGS (11)
  1. MABTHERA [Suspect]
     Indication: ACUTE MYELOID LEUKAEMIA
     Dosage: 375 MG/M2, UNK
     Route: 065
     Dates: start: 20090119
  2. ALKERAN [Concomitant]
     Indication: DRUG USE FOR UNKNOWN INDICATION
  3. ANTI-THYMOCYTE GLOBULIN NOS [Concomitant]
     Indication: DRUG USE FOR UNKNOWN INDICATION
  4. BUSULFAN [Concomitant]
     Indication: DRUG USE FOR UNKNOWN INDICATION
  5. ENDOXAN [Concomitant]
     Indication: DRUG USE FOR UNKNOWN INDICATION
  6. CYCLOSPORINE [Concomitant]
     Indication: DRUG USE FOR UNKNOWN INDICATION
  7. METHYLPREDNISOLONE [Concomitant]
     Indication: DRUG USE FOR UNKNOWN INDICATION
  8. CLINDAMYCIN [Concomitant]
     Indication: DRUG USE FOR UNKNOWN INDICATION
  9. IMIPENEM [Concomitant]
     Indication: DRUG USE FOR UNKNOWN INDICATION
  10. NETROMYCIN [Concomitant]
     Indication: DRUG USE FOR UNKNOWN INDICATION
  11. VORICONAZOLE [Concomitant]
     Indication: DRUG USE FOR UNKNOWN INDICATION

REACTIONS (8)
  - APLASIA [None]
  - GASTROINTESTINAL HAEMORRHAGE [None]
  - GENERAL PHYSICAL HEALTH DETERIORATION [None]
  - HEPATIC FAILURE [None]
  - MALIGNANT NEOPLASM PROGRESSION [None]
  - PULMONARY OEDEMA [None]
  - RENAL FAILURE [None]
  - VENOOCCLUSIVE DISEASE [None]
